FAERS Safety Report 8965105 (Version 1)
Quarter: 2012Q4

REPORT INFORMATION
  Report Type: 
  Country: BR (occurrence: BR)
  Receive Date: 20121214
  Receipt Date: 20121214
  Transmission Date: 20130627
  Serious: Yes (Other)
  Sender: FDA-Public Use
  Company Number: BR-ROCHE-1165527

PATIENT
  Age: 84 Year

DRUGS (2)
  1. AVASTIN [Suspect]
     Indication: COLORECTAL CANCER METASTATIC
     Route: 065
  2. XELODA [Suspect]
     Indication: COLORECTAL CANCER METASTATIC
     Route: 065

REACTIONS (3)
  - Intracardiac thrombus [Unknown]
  - Palmar-plantar erythrodysaesthesia syndrome [Unknown]
  - Cardiac aneurysm [Unknown]
